FAERS Safety Report 6422158-5 (Version None)
Quarter: 2009Q4

REPORT INFORMATION
  Report Type: 
  Country: None (occurrence: None)
  Receive Date: 20091030
  Receipt Date: 20091023
  Transmission Date: 20100525
  Serious: Yes (Hospitalization)
  Sender: FDA-Public Use
  Company Number: GB-TEVA-155607ISR

PATIENT
  Age: 38 Year
  Sex: Male

DRUGS (4)
  1. CEPHALEXIN [Suspect]
     Indication: INFLUENZA LIKE ILLNESS
  2. CEPHALEXIN [Suspect]
     Indication: PETECHIAE
  3. CEPHALEXIN [Suspect]
     Indication: URINE OUTPUT DECREASED
  4. CLOZAPINE [Suspect]
     Indication: SCHIZOPHRENIA
     Route: 048
     Dates: start: 20030106

REACTIONS (10)
  - BLOOD CREATINE PHOSPHOKINASE INCREASED [None]
  - BLOOD CREATININE INCREASED [None]
  - INFLUENZA LIKE ILLNESS [None]
  - LOWER RESPIRATORY TRACT INFECTION [None]
  - MALAISE [None]
  - PETECHIAE [None]
  - PYREXIA [None]
  - RENAL FAILURE ACUTE [None]
  - RHABDOMYOLYSIS [None]
  - URINE OUTPUT DECREASED [None]
